FAERS Safety Report 8578173-9 (Version None)
Quarter: 2012Q3

REPORT INFORMATION
  Report Type: 
  Country: None (occurrence: None)
  Receive Date: 20120808
  Receipt Date: 20120803
  Transmission Date: 20120928
  Serious: No
  Sender: FDA-Public Use
  Company Number: US-PFIZER INC-2012176992

PATIENT
  Age: 79 Year
  Sex: Female
  Weight: 92.971 kg

DRUGS (1)
  1. CHANTIX [Suspect]
     Indication: SMOKING CESSATION THERAPY
     Dosage: 0.5 MG, 1X/DAY
     Route: 048
     Dates: start: 20120712, end: 20120714

REACTIONS (3)
  - MALAISE [None]
  - BRONCHITIS [None]
  - COUGH [None]
